FAERS Safety Report 18441373 (Version 1)
Quarter: 2020Q4

REPORT INFORMATION
  Report Type: Spontaneous
  Country: US (occurrence: US)
  Receive Date: 20201029
  Receipt Date: 20201029
  Transmission Date: 20210114
  Serious: Yes (Other)
  Sender: FDA-Public Use
  Company Number: US-MYLANLABS-2020M1090536

PATIENT
  Age: 64 Year
  Sex: Female

DRUGS (7)
  1. VERAPAMIL [Suspect]
     Active Substance: VERAPAMIL HYDROCHLORIDE
     Indication: REVERSIBLE CEREBRAL VASOCONSTRICTION SYNDROME
     Dosage: 80 MILLIGRAM
     Route: 065
  2. MAGNESIUM [Suspect]
     Active Substance: MAGNESIUM
     Indication: REVERSIBLE CEREBRAL VASOCONSTRICTION SYNDROME
     Dosage: 1 MILLIGRAM, QD
     Route: 042
  3. MAGNESIUM [Suspect]
     Active Substance: MAGNESIUM
     Indication: THUNDERCLAP HEADACHE
  4. MAGNESIUM GLYCINATE [Suspect]
     Active Substance: MAGNESIUM GLYCINATE
     Indication: REVERSIBLE CEREBRAL VASOCONSTRICTION SYNDROME
     Dosage: 400 MILLIGRAM, QD
     Route: 065
  5. MAGNESIUM GLYCINATE [Suspect]
     Active Substance: MAGNESIUM GLYCINATE
     Indication: PROPHYLAXIS
  6. VERAPAMIL [Suspect]
     Active Substance: VERAPAMIL HYDROCHLORIDE
     Indication: THUNDERCLAP HEADACHE
     Dosage: 40 MILLIGRAM
     Route: 065
  7. MAGNESIUM GLYCINATE [Suspect]
     Active Substance: MAGNESIUM GLYCINATE
     Indication: THUNDERCLAP HEADACHE

REACTIONS (3)
  - Dizziness [Unknown]
  - Bradycardia [Unknown]
  - Off label use [Unknown]
